FAERS Safety Report 9688214 (Version 1)
Quarter: 2013Q4

REPORT INFORMATION
  Report Type: Spontaneous
  Country: US (occurrence: US)
  Receive Date: 20131114
  Receipt Date: 20131114
  Transmission Date: 20140711
  Serious: No
  Sender: FDA-Public Use
  Company Number: US-PFIZER INC-2013320777

PATIENT
  Sex: Female

DRUGS (1)
  1. ADVIL PM [Suspect]
     Indication: PAIN
     Dosage: UNK, ONCE A DAY

REACTIONS (4)
  - Drug ineffective [Unknown]
  - Nervousness [Unknown]
  - Irritability [Unknown]
  - Discomfort [Unknown]
